FAERS Safety Report 9372996 (Version 1)
Quarter: 2013Q2

REPORT INFORMATION
  Report Type: Spontaneous
  Country: FR (occurrence: FR)
  Receive Date: 20130627
  Receipt Date: 20130627
  Transmission Date: 20140414
  Serious: Yes (Hospitalization)
  Sender: FDA-Public Use
  Company Number: FR-BRISTOL-MYERS SQUIBB COMPANY-19037712

PATIENT
  Age: 87 Year
  Sex: Female

DRUGS (5)
  1. COUMADIN TABS [Suspect]
     Indication: ATRIAL FIBRILLATION
     Route: 048
     Dates: start: 2012, end: 20130213
  2. FUROSEMIDE [Concomitant]
  3. CORDARONE [Concomitant]
  4. BISOPROLOL HEMIFUMARATE [Concomitant]
  5. EUPANTOL [Concomitant]

REACTIONS (5)
  - Haematoma [Recovered/Resolved]
  - Perirenal haematoma [Recovered/Resolved]
  - Haematuria [Recovered/Resolved]
  - Anaemia [Recovered/Resolved]
  - Fall [Unknown]
